FAERS Safety Report 4877941-4 (Version None)
Quarter: 2006Q1

REPORT INFORMATION
  Report Type: 
  Country: None (occurrence: None)
  Receive Date: 20060110
  Receipt Date: 20051223
  Transmission Date: 20060701
  Serious: Yes (Other)
  Sender: FDA-Public Use
  Company Number: 2006BH000269

PATIENT
  Sex: Female

DRUGS (1)
  1. LACTATED RINGER'S [Suspect]
     Dosage: 500 ML; ONCE; IVBOL
     Route: 040
     Dates: start: 20051115, end: 20051115

REACTIONS (5)
  - DRUG EXPOSURE DURING PREGNANCY [None]
  - HEADACHE [None]
  - HYPERSENSITIVITY [None]
  - PRURITUS GENERALISED [None]
  - RASH PRURITIC [None]
